FAERS Safety Report 4575023-2 (Version None)
Quarter: 2005Q1

REPORT INFORMATION
  Report Type: 
  Country: None (occurrence: None)
  Receive Date: 20050208
  Receipt Date: 20050125
  Transmission Date: 20050727
  Serious: Yes (Death, Hospitalization, Other)
  Sender: FDA-Public Use
  Company Number: US-AMGEN-US109401

PATIENT
  Sex: Female
  Weight: 62.5 kg

DRUGS (14)
  1. SENSIPAR [Suspect]
     Indication: HYPERPARATHYROIDISM SECONDARY
     Route: 048
     Dates: start: 20041027
  2. HECTORAL [Concomitant]
     Route: 042
     Dates: start: 20041228
  3. EPOGEN [Concomitant]
     Indication: DIALYSIS
     Route: 014
     Dates: start: 20041223
  4. CELEBREX [Concomitant]
     Route: 048
     Dates: start: 20030822
  5. NORVASC [Concomitant]
     Route: 048
     Dates: start: 20030822
  6. PHOSLO [Concomitant]
     Route: 048
     Dates: start: 20030822
  7. DARVOCET-N 100 [Concomitant]
     Route: 048
     Dates: start: 20030822
  8. NITROGLYCERIN [Concomitant]
     Route: 060
  9. PROTONIX [Concomitant]
     Route: 048
     Dates: start: 20030822
  10. LISINOPRIL [Concomitant]
     Route: 048
     Dates: start: 20030822
  11. HUMULIN N [Concomitant]
     Dates: start: 20030822
  12. LABETALOL HYDROCHLORIDE [Concomitant]
     Route: 048
     Dates: start: 20030822
  13. IMDUR [Concomitant]
     Route: 048
     Dates: start: 20030822
  14. NEPHRO-CAPS [Concomitant]
     Dates: start: 20030822

REACTIONS (13)
  - ABDOMINAL PAIN UPPER [None]
  - BLOOD CALCIUM DECREASED [None]
  - CEREBRAL ATROPHY [None]
  - COMA [None]
  - CONVULSION [None]
  - ELECTROCARDIOGRAM QT PROLONGED [None]
  - ELECTROCARDIOGRAM T WAVE ABNORMAL [None]
  - FALL [None]
  - HAEMATOMA [None]
  - MYALGIA [None]
  - QRS AXIS ABNORMAL [None]
  - RESPIRATORY ARREST [None]
  - TREATMENT NONCOMPLIANCE [None]
